FAERS Safety Report 8363297-1 (Version None)
Quarter: 2012Q2

REPORT INFORMATION
  Report Type: 
  Country: None (occurrence: None)
  Receive Date: 20120516
  Receipt Date: 20120502
  Transmission Date: 20120825
  Serious: Yes (Other)
  Sender: FDA-Public Use
  Company Number: FR-JNJFOC-20120407107

PATIENT
  Sex: Female
  Weight: 42 kg

DRUGS (2)
  1. AMITRIPTYLINE HCL [Concomitant]
     Indication: PAIN
     Route: 065
     Dates: start: 20080101
  2. DURAGESIC-100 [Suspect]
     Indication: PAIN
     Dosage: FOR ABOUT 3 YEARS
     Route: 062
     Dates: start: 20080101

REACTIONS (3)
  - DRUG PRESCRIBING ERROR [None]
  - WITHDRAWAL SYNDROME [None]
  - DRUG INEFFECTIVE [None]
